FAERS Safety Report 5671386-5 (Version None)
Quarter: 2008Q1

REPORT INFORMATION
  Report Type: 
  Country: None (occurrence: None)
  Receive Date: 20080318
  Receipt Date: 20080306
  Transmission Date: 20080703
  Serious: Yes (Death, Hospitalization)
  Sender: FDA-Public Use
  Company Number: CN-PFIZER INC-2008020366

PATIENT
  Age: 91 Year
  Sex: Male

DRUGS (6)
  1. CARDURA [Suspect]
     Indication: BENIGN PROSTATIC HYPERPLASIA
     Route: 048
     Dates: start: 20080229, end: 20080229
  2. CEFUROXIME SODIUM [Concomitant]
     Indication: URINARY TRACT INFECTION
     Route: 048
     Dates: start: 20080221, end: 20080301
  3. LEVOFLOXACIN [Concomitant]
     Route: 042
     Dates: start: 20080221, end: 20080301
  4. DIPROPHYLLINE [Concomitant]
     Route: 048
     Dates: start: 20080221, end: 20080301
  5. AZLOCILLIN [Concomitant]
     Route: 042
     Dates: start: 20080221, end: 20080301
  6. ALL OTHER THERAPEUTIC PRODUCTS [Concomitant]
     Route: 048
     Dates: start: 20080229, end: 20080229

REACTIONS (2)
  - ACUTE RESPIRATORY FAILURE [None]
  - CONVULSION [None]
